FAERS Safety Report 9305043 (Version 1)
Quarter: 2013Q2

REPORT INFORMATION
  Report Type: Spontaneous
  Country: US (occurrence: US)
  Receive Date: 20130523
  Receipt Date: 20130523
  Transmission Date: 20140414
  Serious: No
  Sender: FDA-Public Use
  Company Number: US-009507513-1305USA013390

PATIENT
  Sex: Male

DRUGS (4)
  1. JANUMET [Suspect]
     Indication: BLOOD GLUCOSE INCREASED
     Dosage: UNK
     Route: 048
     Dates: start: 2008
  2. CRESTOR [Concomitant]
  3. RAMIPRIL [Concomitant]
  4. METOPROLOL [Concomitant]

REACTIONS (1)
  - Muscle spasms [Not Recovered/Not Resolved]
